FAERS Safety Report 16961694 (Version 1)
Quarter: 2019Q4

REPORT INFORMATION
  Report Type: Spontaneous
  Country: FR (occurrence: FR)
  Receive Date: 20191025
  Receipt Date: 20191025
  Transmission Date: 20200122
  Serious: Yes (Hospitalization)
  Sender: FDA-Public Use
  Company Number: FR-B.I. PHARMACEUTICALS,INC./RIDGEFIELD-2019-12-108917

PATIENT
  Age: 81 Year
  Sex: Male
  Weight: 74 kg

DRUGS (2)
  1. LOXAPAC [LOXAPINE SUCCINATE] [Interacting]
     Active Substance: LOXAPINE SUCCINATE
     Indication: BEHAVIOUR DISORDER
     Dosage: DOSE (NO.): 6, DOSE 031
     Route: 048
     Dates: start: 201908, end: 20190902
  2. SIFROL [Suspect]
     Active Substance: PRAMIPEXOLE
     Indication: PARKINSON^S DISEASE
     Dosage: INCONNUE
     Route: 048
     Dates: start: 201908, end: 20190902

REACTIONS (6)
  - Product use issue [Recovered/Resolved]
  - Parkinsonism [Recovered/Resolved]
  - Medication error [Recovered/Resolved]
  - Labelled drug-drug interaction medication error [Recovered/Resolved]
  - Hallucination [Recovered/Resolved]
  - Muscle rigidity [Recovered/Resolved]

NARRATIVE: CASE EVENT DATE: 201908
